FAERS Safety Report 6580235-2 (Version None)
Quarter: 2010Q1

REPORT INFORMATION
  Report Type: 
  Country: None (occurrence: None)
  Receive Date: 20100212
  Receipt Date: 20100127
  Transmission Date: 20100710
  Serious: Yes (Death, Hospitalization, Other)
  Sender: FDA-Public Use
  Company Number: US-BAYER-200930726NA

PATIENT
  Age: 79 Year
  Sex: Female
  Weight: 68 kg

DRUGS (14)
  1. MAGNEVIST [Suspect]
     Indication: NUCLEAR MAGNETIC RESONANCE IMAGING
     Route: 042
     Dates: start: 20060112, end: 20060112
  2. MAGNEVIST [Suspect]
     Route: 042
     Dates: start: 20060117, end: 20060117
  3. MAGNEVIST [Suspect]
     Route: 042
     Dates: start: 20060330, end: 20060330
  4. OMNISCAN [Suspect]
     Indication: NUCLEAR MAGNETIC RESONANCE IMAGING ABDOMINAL
     Dosage: AS USED: 20 ML
     Route: 042
     Dates: start: 20060802, end: 20060802
  5. OMNISCAN [Suspect]
     Dates: start: 20060201, end: 20060201
  6. COUMADIN [Concomitant]
  7. SENSIPAR [Concomitant]
  8. FOSRENOL [Concomitant]
  9. PROTONIX [Concomitant]
  10. DIGOXIN [Concomitant]
  11. CALCITRIOL [Concomitant]
  12. EPOGEN [Concomitant]
  13. METOPROLOL TARTRATE [Concomitant]
  14. PREDNISONE [Concomitant]

REACTIONS (15)
  - DEFORMITY [None]
  - GENERAL PHYSICAL HEALTH DETERIORATION [None]
  - JOINT STIFFNESS [None]
  - NEPHROGENIC SYSTEMIC FIBROSIS [None]
  - OEDEMA [None]
  - OEDEMA PERIPHERAL [None]
  - PAIN [None]
  - PAIN OF SKIN [None]
  - PULMONARY FIBROSIS [None]
  - RESPIRATORY DISORDER [None]
  - SCAR [None]
  - SKIN DISCOLOURATION [None]
  - SKIN FIBROSIS [None]
  - SKIN HYPERTROPHY [None]
  - SKIN INDURATION [None]
